FAERS Safety Report 6547757-1 (Version None)
Quarter: 2010Q1

REPORT INFORMATION
  Report Type: 
  Country: None (occurrence: None)
  Receive Date: 20100124
  Receipt Date: 20091006
  Transmission Date: 20100710
  Serious: No
  Sender: FDA-Public Use
  Company Number: US-ALEXION-A200900817

PATIENT
  Sex: Male

DRUGS (5)
  1. SOLIRIS [Suspect]
     Indication: PAROXYSMAL NOCTURNAL HAEMOGLOBINURIA
     Dosage: UNK
     Route: 042
     Dates: start: 20070928
  2. SOLIRIS [Suspect]
     Dosage: 900 MG, UNK
     Route: 042
  3. COUMADIN [Concomitant]
     Dosage: RANGE FROM 10-20 MG DAILY
     Route: 048
  4. NAPROXEN [Concomitant]
     Dosage: UNK
     Route: 048
  5. FOLIC ACID [Concomitant]
     Dosage: 1 MG, QD
     Route: 048

REACTIONS (6)
  - ARTHRALGIA [None]
  - BACK PAIN [None]
  - CELLULITIS [None]
  - DIZZINESS [None]
  - HAEMOGLOBIN DECREASED [None]
  - JOINT SWELLING [None]
